FAERS Safety Report 12301937 (Version 3)
Quarter: 2016Q2

REPORT INFORMATION
  Report Type: Report from Study
  Country: DE (occurrence: DE)
  Receive Date: 20160425
  Receipt Date: 20160606
  Transmission Date: 20160815
  Serious: Yes (Hospitalization)
  Sender: FDA-Public Use
  Company Number: DE-TEVA-653590ISR

PATIENT
  Age: 64 Year
  Sex: Male
  Weight: 96 kg

DRUGS (4)
  1. FLUDARABINE [Suspect]
     Active Substance: FLUDARABINE PHOSPHATE
     Indication: DRUG THERAPY
     Dosage: 65.6 MILLIGRAM DAILY;
     Route: 042
     Dates: start: 20160309, end: 20160313
  2. BUSULFAN PIERRE FABRE [Suspect]
     Active Substance: BUSULFAN
     Indication: DRUG THERAPY
     Dosage: 317.6 MILLIGRAM DAILY;
     Route: 042
     Dates: start: 20160311, end: 20160312
  3. TREOSULFAN MEDAC [Suspect]
     Active Substance: TREOSULFAN
     Indication: DRUG THERAPY
     Dosage: 0 MILLIGRAM DAILY;
  4. ATG-FRESENIUS [Suspect]
     Active Substance: LAPINE T-LYMPHOCYTE IMMUNE GLOBULIN
     Indication: DRUG THERAPY
     Dosage: 933 MILLIGRAM DAILY;
     Route: 042
     Dates: start: 20160311, end: 20160313

REACTIONS (1)
  - Ileus [Recovered/Resolved]

NARRATIVE: CASE EVENT DATE: 20160412
